FAERS Safety Report 12722228 (Version 1)
Quarter: 2016Q3

REPORT INFORMATION
  Report Type: Report from Study
  Country: US (occurrence: US)
  Receive Date: 20160907
  Receipt Date: 20160907
  Transmission Date: 20161109
  Serious: Yes (Hospitalization)
  Sender: FDA-Public Use
  Company Number: US-BAYER-2016-148482

PATIENT
  Age: 66 Year
  Sex: Male

DRUGS (2)
  1. STIVARGA [Suspect]
     Active Substance: REGORAFENIB
     Indication: COLORECTAL CANCER
     Dosage: 160 MG, QD
     Route: 048
     Dates: start: 20160722, end: 20160727
  2. STIVARGA [Suspect]
     Active Substance: REGORAFENIB
     Indication: COLORECTAL CANCER
     Dosage: 160 MG, QD IN AM WITH LOW FAT MEAL
     Route: 048
     Dates: start: 20160825, end: 20160829

REACTIONS (3)
  - Faeces discoloured [None]
  - Diarrhoea [None]
  - Anal fistula [None]

NARRATIVE: CASE EVENT DATE: 201607
